FAERS Safety Report 18997281 (Version 1)
Quarter: 2021Q1

REPORT INFORMATION
  Report Type: Spontaneous
  Country: US (occurrence: US)
  Receive Date: 20210311
  Receipt Date: 20210311
  Transmission Date: 20210420
  Serious: Yes (Hospitalization)
  Sender: FDA-Public Use
  Company Number: None

PATIENT
  Age: 37 Year
  Sex: Female
  Weight: 184 kg

DRUGS (3)
  1. BAMLANIVIMAB. [Suspect]
     Active Substance: BAMLANIVIMAB
     Indication: COVID-19
     Dates: start: 20210310, end: 20210310
  2. TYLENOL [Concomitant]
     Active Substance: ACETAMINOPHEN
     Dates: start: 20210310
  3. BENADRYL [Concomitant]
     Active Substance: DIPHENHYDRAMINE HYDROCHLORIDE
     Dates: start: 20210310

REACTIONS (9)
  - Asthenia [None]
  - Oxygen saturation decreased [None]
  - Dizziness postural [None]
  - Infusion related reaction [None]
  - Dyspnoea [None]
  - Headache [None]
  - Bradycardia [None]
  - Visual impairment [None]
  - Dizziness [None]

NARRATIVE: CASE EVENT DATE: 20210310
